FAERS Safety Report 8837106 (Version 1)
Quarter: 2012Q4

REPORT INFORMATION
  Report Type: 
  Country: US (occurrence: US)
  Receive Date: 20121011
  Receipt Date: 20121011
  Transmission Date: 20130627
  Serious: No
  Sender: FDA-Public Use
  Company Number: US-TEVA-363667USA

PATIENT
  Age: 72 Year
  Sex: Male
  Weight: 87.17 kg

DRUGS (3)
  1. NUVIGIL [Suspect]
     Indication: SLEEP APNOEA SYNDROME
     Dosage: 250 Milligram Daily; started on samples
     Route: 048
     Dates: start: 2012, end: 2012
  2. NUVIGIL [Suspect]
     Dosage: 1/2 tablet
     Route: 048
     Dates: start: 2012
  3. PLAVIX [Concomitant]

REACTIONS (2)
  - Dizziness [Recovered/Resolved]
  - Drug ineffective [Recovered/Resolved]
